FAERS Safety Report 17926536 (Version 2)
Quarter: 2020Q4

REPORT INFORMATION
  Report Type: Report from Study
  Country: AR (occurrence: AR)
  Receive Date: 20200622
  Receipt Date: 20201229
  Transmission Date: 20210113
  Serious: Yes (Other)
  Sender: FDA-Public Use
  Company Number: AR-INCYTE CORPORATION-2020IN005847

PATIENT

DRUGS (9)
  1. JAKAVI [Suspect]
     Active Substance: RUXOLITINIB
     Indication: MYELOFIBROSIS
     Dosage: 10 MG, QD (ONCE DAILY)
     Route: 048
     Dates: start: 20140101
  2. ACENOCOUMAROL [Concomitant]
     Active Substance: ACENOCOUMAROL
     Indication: ANTICOAGULANT THERAPY
  3. JAKAVI [Suspect]
     Active Substance: RUXOLITINIB
     Dosage: UNK
     Route: 048
     Dates: end: 201902
  4. JAKAVI [Suspect]
     Active Substance: RUXOLITINIB
     Dosage: UNK
     Route: 048
     Dates: start: 201904
  5. ENALAPRIL [Concomitant]
     Active Substance: ENALAPRIL
     Indication: HYPERTENSION
     Dosage: 10 MG, QD
     Route: 065
  6. MEPREDNISONE [Concomitant]
     Active Substance: MEPREDNISONE
     Indication: PRODUCT USED FOR UNKNOWN INDICATION
     Dosage: UNK UNK, QD (2 X 8MG)
     Route: 065
  7. DAFLON [Concomitant]
     Indication: MYELOFIBROSIS
     Dosage: UNK, QD (2 X 500MG)
     Route: 065
  8. HYDROXYUREA. [Concomitant]
     Active Substance: HYDROXYUREA
     Indication: MYELOFIBROSIS
     Dosage: UNK, Q3W (1 X 500MG)
     Route: 065
  9. ACENOCOUMAROL [Concomitant]
     Active Substance: ACENOCOUMAROL
     Indication: MYELOFIBROSIS
     Dosage: UNK UNK, QD (? X 4 MG)
     Route: 065

REACTIONS (7)
  - Abdominal distension [Unknown]
  - Splenitis [Recovering/Resolving]
  - Abdominal pain [Recovering/Resolving]
  - Splenomegaly [Unknown]
  - Abdominal rigidity [Unknown]
  - Inappropriate schedule of product administration [Unknown]
  - Splenic infarction [Recovering/Resolving]

NARRATIVE: CASE EVENT DATE: 201902
